FAERS Safety Report 9870157 (Version 1)
Quarter: 2014Q1

REPORT INFORMATION
  Report Type: Spontaneous
  Country: FR (occurrence: FR)
  Receive Date: 20140205
  Receipt Date: 20140205
  Transmission Date: 20141002
  Serious: Yes (Other)
  Sender: FDA-Public Use
  Company Number: FR-PFIZER INC-2014029005

PATIENT
  Age: 75 Year
  Sex: Female

DRUGS (1)
  1. AROMASINE [Suspect]
     Indication: BREAST CANCER
     Dosage: 1 DF, 1X/DAY
     Route: 048
     Dates: start: 20130422, end: 20130530

REACTIONS (3)
  - Dry mouth [Not Recovered/Not Resolved]
  - Pain [Not Recovered/Not Resolved]
  - Oral candidiasis [Recovered/Resolved]
